FAERS Safety Report 6305788-0 (Version None)
Quarter: 2009Q3

REPORT INFORMATION
  Report Type: 
  Country: None (occurrence: None)
  Receive Date: 20090812
  Receipt Date: 20070725
  Transmission Date: 20100115
  Serious: Yes (Other)
  Sender: FDA-Public Use
  Company Number: US-ASTRAZENECA-2006UW25930

PATIENT
  Age: 53 Year
  Sex: Male
  Weight: 104.3 kg

DRUGS (12)
  1. SEROQUEL [Suspect]
     Indication: SLEEP DISORDER
     Route: 048
     Dates: start: 20060301
  2. CRESTOR [Concomitant]
     Route: 048
     Dates: start: 20050713
  3. PLAVIX [Concomitant]
     Dates: start: 20020411
  4. PROTONIX [Concomitant]
     Route: 048
     Dates: start: 20060108
  5. DIGOXIN [Concomitant]
     Dosage: 0.125 MG PER DAY, 0.25 MG A DAY
     Route: 048
     Dates: start: 20040301
  6. AMBIEN/ AMBIEN CR [Concomitant]
     Dosage: 10 MG DAILY, 12.5 MG Q.H.S
     Route: 048
     Dates: start: 20021123
  7. LISINOPRIL [Concomitant]
     Route: 048
     Dates: start: 20011208
  8. CELEBREX [Concomitant]
     Dates: start: 20001115
  9. VALIUM [Concomitant]
     Dosage: 10 MG 3 PILLS 3 TIMES PER DAY
     Route: 048
     Dates: start: 19880815
  10. LASIX [Concomitant]
     Route: 048
     Dates: start: 20011210
  11. LYRICA [Concomitant]
     Dosage: 50 MG THREE TIMES DAILY P.R.N
     Route: 048
     Dates: start: 20070313
  12. AMIODARONE HCL [Concomitant]
     Dates: start: 20060627

REACTIONS (3)
  - DIABETES MELLITUS [None]
  - DIABETIC NEUROPATHY [None]
  - TYPE 2 DIABETES MELLITUS [None]
